FAERS Safety Report 25063907 (Version 1)
Quarter: 2025Q1

REPORT INFORMATION
  Report Type: Report from Study
  Country: PK (occurrence: PK)
  Receive Date: 20250311
  Receipt Date: 20250311
  Transmission Date: 20250408
  Serious: Yes (Death)
  Sender: ROCHE
  Company Number: PK-ROCHE-10000225652

PATIENT
  Age: 51 Year
  Sex: Female

DRUGS (2)
  1. AVASTIN [Suspect]
     Active Substance: BEVACIZUMAB
     Indication: Ovarian cancer
     Route: 042
     Dates: start: 20250129
  2. AVASTIN [Suspect]
     Active Substance: BEVACIZUMAB
     Route: 042

REACTIONS (3)
  - Ovarian cancer [Fatal]
  - Pain [Fatal]
  - Asthenia [Fatal]

NARRATIVE: CASE EVENT DATE: 20250220
